FAERS Safety Report 4332786-9 (Version None)
Quarter: 2004Q2

REPORT INFORMATION
  Report Type: 
  Country: None (occurrence: None)
  Receive Date: 20040406
  Receipt Date: 20040302
  Transmission Date: 20050107
  Serious: Yes (Other)
  Sender: FDA-Public Use
  Company Number: PHBS2004JP02845

PATIENT
  Age: 75 Year
  Sex: Male

DRUGS (5)
  1. STARSIS #AJ [Suspect]
     Indication: DIABETES MELLITUS
     Dosage: 90 MG/DAY
     Route: 048
     Dates: start: 20031126
  2. SIGMART [Concomitant]
     Dosage: 5 MG, UNK
  3. AMISALIN [Concomitant]
     Dosage: 250 MG, UNK
  4. BUFFERIN [Concomitant]
     Dosage: 81 MG, UNK
  5. NITRODERM [Concomitant]

REACTIONS (1)
  - DEMENTIA [None]
